FAERS Safety Report 9523153 (Version 1)
Quarter: 2013Q3

REPORT INFORMATION
  Report Type: Spontaneous
  Country: BR (occurrence: BR)
  Receive Date: 20130913
  Receipt Date: 20130913
  Transmission Date: 20140515
  Serious: Yes (Hospitalization)
  Sender: FDA-Public Use
  Company Number: BR-GLAXOSMITHKLINE-A1025376A

PATIENT
  Age: 25 Year
  Sex: Female
  Weight: 76 kg

DRUGS (3)
  1. BACTROBAN [Suspect]
     Indication: PRURITUS
     Dates: start: 20130527, end: 20130527
  2. FOLIC ACID [Suspect]
     Indication: PRODUCT USED FOR UNKNOWN INDICATION
     Dosage: 5MG PER DAY
     Dates: start: 20121224, end: 20130225
  3. FERROUS SULFATE [Suspect]
     Indication: PRODUCT USED FOR UNKNOWN INDICATION
     Dosage: 250MG PER DAY
     Dates: start: 201301

REACTIONS (5)
  - Infertility [Unknown]
  - Stillbirth [Unknown]
  - Abortion induced [Unknown]
  - Exposure during pregnancy [Unknown]
  - Drug administration error [Unknown]
